FAERS Safety Report 16756008 (Version 1)
Quarter: 2019Q3

REPORT INFORMATION
  Report Type: Spontaneous
  Country: PL (occurrence: PL)
  Receive Date: 20190829
  Receipt Date: 20190829
  Transmission Date: 20191005
  Serious: Yes (Disabling)
  Sender: FDA-Public Use
  Company Number: PL-GILEAD-2019-0423547

PATIENT
  Age: 35 Year
  Sex: Male
  Weight: 72 kg

DRUGS (2)
  1. ENCORTON [PREDNISONE] [Concomitant]
     Active Substance: PREDNISONE
  2. EPCLUSA [Suspect]
     Active Substance: SOFOSBUVIR\VELPATASVIR
     Indication: PRODUCT USED FOR UNKNOWN INDICATION
     Dosage: 1 DOSAGE FORM
     Route: 048
     Dates: start: 20190514, end: 20190805

REACTIONS (8)
  - Muscle spasms [Unknown]
  - Nervous system disorder [Not Recovered/Not Resolved]
  - Judgement impaired [Recovered/Resolved]
  - Sensory disturbance [Not Recovered/Not Resolved]
  - Coordination abnormal [Recovered/Resolved]
  - Sleep disorder [Not Recovered/Not Resolved]
  - Memory impairment [Recovered/Resolved]
  - Nervous system disorder [Recovered/Resolved]

NARRATIVE: CASE EVENT DATE: 201905
